FAERS Safety Report 8624462-9 (Version None)
Quarter: 2012Q3

REPORT INFORMATION
  Report Type: 
  Country: None (occurrence: None)
  Receive Date: 20120827
  Receipt Date: 20120820
  Transmission Date: 20120928
  Serious: No
  Sender: FDA-Public Use
  Company Number: US-B.I. PHARMACEUTICALS,INC./RIDGEFIELD-2012-BP-20210BP

PATIENT
  Sex: Female

DRUGS (3)
  1. PRADAXA [Suspect]
     Indication: ATRIAL FIBRILLATION
     Dosage: 150 MG
     Route: 048
     Dates: start: 20110201
  2. PRADAXA [Suspect]
     Dosage: 75 MG
     Route: 048
  3. LOPRESSOR [Concomitant]
     Indication: ATRIAL FIBRILLATION

REACTIONS (3)
  - ERYTHEMA [None]
  - ERYTHEMA OF EYELID [None]
  - SKIN HAEMORRHAGE [None]
